FAERS Safety Report 11344017 (Version 2)
Quarter: 2017Q1

REPORT INFORMATION
  Report Type: Spontaneous
  Country: US (occurrence: US)
  Receive Date: 20150806
  Receipt Date: 20170328
  Transmission Date: 20170428
  Serious: Yes (Hospitalization, Other)
  Sender: FDA-Public Use
  Company Number: US-JNJFOC-20150802903

PATIENT
  Age: 74 Year
  Sex: Female

DRUGS (20)
  1. IMBRUVICA [Suspect]
     Active Substance: IBRUTINIB
     Indication: CHRONIC LYMPHOCYTIC LEUKAEMIA
     Route: 048
     Dates: start: 20150101, end: 20161101
  2. MUCINEX [Concomitant]
     Active Substance: GUAIFENESIN
  3. ZANTAC [Concomitant]
     Active Substance: RANITIDINE HYDROCHLORIDE
  4. ALEVE [Concomitant]
     Active Substance: NAPROXEN SODIUM
  5. MAGNESIUM [Concomitant]
     Active Substance: MAGNESIUM
  6. SEPTRA [Concomitant]
     Active Substance: SULFAMETHOXAZOLE\TRIMETHOPRIM
  7. CELEXA [Concomitant]
     Active Substance: CITALOPRAM HYDROBROMIDE
  8. BETHANECHOL [Concomitant]
     Active Substance: BETHANECHOL
  9. NEURONTIN [Concomitant]
     Active Substance: GABAPENTIN
  10. CO-Q10 [Concomitant]
  11. CIPRO [Concomitant]
     Active Substance: CIPROFLOXACIN HYDROCHLORIDE
  12. OXYCODONE [Concomitant]
     Active Substance: OXYCODONE
  13. AMITRIPTYLINE [Concomitant]
     Active Substance: AMITRIPTYLINE
  14. GAS-X [Concomitant]
     Active Substance: DIMETHICONE
  15. CITRACAL [Concomitant]
     Active Substance: CALCIUM CITRATE
  16. ZINC. [Concomitant]
     Active Substance: ZINC
  17. MSM [Concomitant]
     Active Substance: DIMETHYL SULFONE
  18. IMBRUVICA [Suspect]
     Active Substance: IBRUTINIB
     Indication: CHRONIC LYMPHOCYTIC LEUKAEMIA
     Route: 048
     Dates: start: 20140718
  19. MORPHINE [Concomitant]
     Active Substance: MORPHINE
  20. DOXYCYCLINE. [Concomitant]
     Active Substance: DOXYCYCLINE

REACTIONS (7)
  - Gastrointestinal haemorrhage [Recovered/Resolved]
  - Rectal haemorrhage [Recovered/Resolved]
  - Intervertebral disc protrusion [Unknown]
  - Peripheral swelling [Unknown]
  - Back pain [Not Recovered/Not Resolved]
  - Oesophageal rupture [Unknown]
  - Haematemesis [Recovered/Resolved]

NARRATIVE: CASE EVENT DATE: 201504
